FAERS Safety Report 7549715-7 (Version None)
Quarter: 2011Q2

REPORT INFORMATION
  Report Type: 
  Country: None (occurrence: None)
  Receive Date: 20110615
  Receipt Date: 20110531
  Transmission Date: 20111010
  Serious: Yes (Hospitalization)
  Sender: FDA-Public Use
  Company Number: US-WATSON-2011-07637

PATIENT
  Sex: Female
  Weight: 65.7 kg

DRUGS (30)
  1. CARBIDOPA + LEVODOPA [Suspect]
     Indication: PARKINSON'S DISEASE
     Dosage: 103.8 ML, DAILY OTHER DAILY DOSE: 103.8 ML/HR, AS USED: 5.8 ML/HR, ROUTE: PEG-J, 16 HRS DAILY
     Dates: start: 20100330
  2. AMITIZA [Suspect]
     Indication: PRODUCT USED FOR UNKNOWN INDICATION
     Dosage: UNKNOWN DAILY DOSE
     Route: 065
     Dates: end: 20110408
  3. SULFATRIUM DS [Concomitant]
     Indication: PRODUCT USED FOR UNKNOWN INDICATION
     Dosage: 2 DOSAGE FORM, DAILY
     Dates: start: 20110310
  4. METAXALONE [Concomitant]
     Indication: PRODUCT USED FOR UNKNOWN INDICATION
     Dosage: 2400 MG DAILY, AS USED: 400-800 MG, TID
     Dates: start: 20110110
  5. GLUCOSAMINE SULFATE [Concomitant]
     Indication: PRODUCT USED FOR UNKNOWN INDICATION
     Dosage: 1000 IU, ONCE A DAY
     Dates: start: 20100411
  6. MAGNESIUM SULFATE [Concomitant]
     Indication: PRODUCT USED FOR UNKNOWN INDICATION
     Dosage: 400 MG DAILY
     Dates: start: 19900101
  7. CHARCOAL, ACTIVATED [Concomitant]
     Indication: PRODUCT USED FOR UNKNOWN INDICATION
     Dosage: 0.25 TAB, AS NEEDED
     Dates: start: 20110212
  8. MULTI-VITAMINS [Concomitant]
     Indication: PRODUCT USED FOR UNKNOWN INDICATION
     Dosage: 1 DOSAGE FORM, DAILY
  9. PHENOSODIUM PHENOLATE MOUTHWASH [Concomitant]
     Indication: PRODUCT USED FOR UNKNOWN INDICATION
     Dosage: 1 APPLICATION, ONCE A DAY, AS NEEDED
     Dates: start: 20080101
  10. FOLIC ACID [Concomitant]
     Indication: PRODUCT USED FOR UNKNOWN INDICATION
     Dosage: 1 MG DAILY
  11. DESOWEN CREAM [Concomitant]
     Indication: PRODUCT USED FOR UNKNOWN INDICATION
     Dosage: 1 APPLICATION, ONCE A DAY, AS NEEDED
     Dates: start: 20090723
  12. ZINC [Concomitant]
     Indication: PRODUCT USED FOR UNKNOWN INDICATION
     Dosage: 25 MG DAILY
     Dates: start: 19900101
  13. VITAMIN B-12 [Concomitant]
     Dosage: 500 MG DAILY
     Dates: start: 20100701
  14. VITAMIN D [Concomitant]
     Indication: PRODUCT USED FOR UNKNOWN INDICATION
     Dosage: 600 IU, DAILY
     Dates: start: 20110327
  15. LACTULOSE [Concomitant]
     Indication: PRODUCT USED FOR UNKNOWN INDICATION
     Dosage: 40 MG DAILY
     Dates: start: 20110328
  16. BACLOFEN [Suspect]
     Indication: DETRUSOR SPHINCTER DYSSYNERGIA
     Dosage: 10 MG, TID
     Route: 048
     Dates: start: 20110408
  17. HYDROCODONE BITARTRATE AND ACETAMINOPHEN [Suspect]
     Indication: BACK PAIN
     Dosage: 5/500MG; 1 DOSAGE FORM QID DAILY: 4 DOSAGE FORM, AS NEEDED
     Route: 048
     Dates: start: 20110212
  18. ASPIRIN [Suspect]
     Indication: PROPHYLAXIS
     Dosage: 81 MG, DAILY
     Route: 048
     Dates: start: 20110322
  19. SODIUM CARBOXYMETHYL CELLULOSE [Concomitant]
     Indication: PRODUCT USED FOR UNKNOWN INDICATION
     Dosage: 0.25% EYE DROPS; 2 DROPS DAILY
     Dates: start: 20110201
  20. DICLOFENAC EPOLAMINE [Concomitant]
     Indication: PRODUCT USED FOR UNKNOWN INDICATION
     Dosage: 1.3% PATCH; 1 DOSAGE FORM DAILY
     Route: 062
     Dates: start: 20110121
  21. MELOXICAM [Concomitant]
     Indication: PRODUCT USED FOR UNKNOWN INDICATION
     Dosage: 15 MG DAILY
     Dates: start: 20110214
  22. BENADRYL [Concomitant]
     Indication: PRODUCT USED FOR UNKNOWN INDICATION
     Dosage: 25 MG DAILY
     Dates: start: 20100628
  23. VITAMIIN C [Concomitant]
     Indication: PRODUCT USED FOR UNKNOWN INDICATION
     Dosage: 500 MG DAILY
     Dates: start: 20100411
  24. RECLAST [Concomitant]
     Indication: PRODUCT USED FOR UNKNOWN INDICATION
     Dosage: UNK
     Dates: start: 20091103
  25. VITAMIN D [Concomitant]
     Dosage: 1000 IU, ONCE A DAY
     Dates: start: 20090410
  26. SARNA ANTI-ITCH LOTION [Concomitant]
     Indication: PRODUCT USED FOR UNKNOWN INDICATION
     Dosage: 1 APPLICATION, ONCE A DAY, AS NEEDED
     Dates: start: 20091016
  27. CALCIUM CARBONATE [Concomitant]
     Indication: PRODUCT USED FOR UNKNOWN INDICATION
     Dosage: 1000 MG
     Dates: start: 19900101
  28. VITAMIN B-12 [Concomitant]
     Indication: PRODUCT USED FOR UNKNOWN INDICATION
     Dosage: 1000 MCG DAILY
     Dates: start: 20110322
  29. SKELAXIN [Concomitant]
     Indication: PRODUCT USED FOR UNKNOWN INDICATION
     Dosage: 4800 MG DAILY, AS USED: 800 MG SIX TIMES A DAY
  30. NEXIUM [Concomitant]
     Indication: PRODUCT USED FOR UNKNOWN INDICATION
     Dosage: 80 MG DAILY

REACTIONS (6)
  - VOMITING [None]
  - PAIN [None]
  - ABDOMINAL PAIN [None]
  - DIZZINESS [None]
  - NAUSEA [None]
  - CONSTIPATION [None]
